FAERS Safety Report 14788086 (Version 4)
Quarter: 2021Q2

REPORT INFORMATION
  Report Type: Spontaneous
  Country: US (occurrence: US)
  Receive Date: 20180422
  Receipt Date: 20210609
  Transmission Date: 20210716
  Serious: Yes (Death, Hospitalization, Other)
  Sender: FDA-Public Use
  Company Number: PHEH2018US015014

PATIENT
  Sex: Male
  Weight: 12.2 kg

DRUGS (8)
  1. ILARIS [Suspect]
     Active Substance: CANAKINUMAB
     Dosage: 180 MG, EVERY 4 WEEKS
     Route: 065
  2. TOCILIZUMAB. [Suspect]
     Active Substance: TOCILIZUMAB
     Dosage: 150 MG, Q2W
     Route: 065
  3. ILARIS [Suspect]
     Active Substance: CANAKINUMAB
     Indication: STILL^S DISEASE
     Dosage: 180 MG, Q4W
     Route: 065
  4. TOCILIZUMAB. [Suspect]
     Active Substance: TOCILIZUMAB
     Indication: STILL^S DISEASE
     Dosage: 12 MG, QD
     Route: 065
  5. TOCILIZUMAB. [Suspect]
     Active Substance: TOCILIZUMAB
     Dosage: 150 MG, Q2W
     Route: 065
  6. IVIG [Suspect]
     Active Substance: HUMAN IMMUNOGLOBULIN G
     Indication: STILL^S DISEASE
     Dosage: UNK
     Route: 065
  7. ILARIS [Suspect]
     Active Substance: CANAKINUMAB
     Dosage: 180 MG, Q2W
     Route: 065
  8. VENOFER [Suspect]
     Active Substance: IRON SUCROSE
     Indication: STILL^S DISEASE
     Dosage: UNK
     Route: 065

REACTIONS (13)
  - Death [Fatal]
  - Weight decreased [Unknown]
  - Rhinovirus infection [Unknown]
  - Haemophagocytic lymphohistiocytosis [Not Recovered/Not Resolved]
  - Inappropriate schedule of product administration [Unknown]
  - Pneumonia [Unknown]
  - Drug reaction with eosinophilia and systemic symptoms [Unknown]
  - Diarrhoea [Unknown]
  - Pneumonia lipoid [Recovering/Resolving]
  - Rash [Unknown]
  - Influenza like illness [Unknown]
  - Pleural adhesion [Unknown]
  - Alveolar proteinosis [Unknown]
